FAERS Safety Report 6325578-2 (Version None)
Quarter: 2009Q3

REPORT INFORMATION
  Report Type: 
  Country: None (occurrence: None)
  Receive Date: 20090824
  Receipt Date: 20090724
  Transmission Date: 20100115
  Serious: No
  Sender: FDA-Public Use
  Company Number: US-ABBOTT-09P-163-0587058-00

PATIENT
  Sex: Female
  Weight: 63.56 kg

DRUGS (10)
  1. NIASPAN [Suspect]
     Indication: BLOOD CHOLESTEROL INCREASED
     Dosage: AT BEDTIME
     Dates: start: 20090701
  2. GLUCOVANCE [Concomitant]
     Indication: DRUG USE FOR UNKNOWN INDICATION
  3. ASPIRIN [Concomitant]
     Indication: DRUG USE FOR UNKNOWN INDICATION
  4. CALCIUM [Concomitant]
     Indication: DRUG USE FOR UNKNOWN INDICATION
  5. BLOOD PRESSURE PILLS [Concomitant]
     Indication: DRUG USE FOR UNKNOWN INDICATION
  6. EVISTA [Concomitant]
     Indication: DRUG USE FOR UNKNOWN INDICATION
  7. METOPROLOL [Concomitant]
     Indication: DRUG USE FOR UNKNOWN INDICATION
  8. PREVACID [Concomitant]
     Indication: DRUG USE FOR UNKNOWN INDICATION
  9. SYNTHROID [Concomitant]
     Indication: DRUG USE FOR UNKNOWN INDICATION
  10. ZOCOR [Concomitant]
     Indication: DRUG USE FOR UNKNOWN INDICATION

REACTIONS (3)
  - BACK PAIN [None]
  - HYPOPHAGIA [None]
  - RENAL DISORDER [None]
